FAERS Safety Report 5460601-9 (Version None)
Quarter: 2007Q3

REPORT INFORMATION
  Report Type: 
  Country: None (occurrence: None)
  Receive Date: 20070919
  Receipt Date: 20070912
  Transmission Date: 20080115
  Serious: Yes (Hospitalization)
  Sender: FDA-Public Use
  Company Number: US-PFIZER INC-2007075559

PATIENT
  Age: 69 Year
  Sex: Female
  Weight: 78.3 kg

DRUGS (1)
  1. SUTENT [Suspect]
     Indication: THYROID CANCER
     Route: 048

REACTIONS (1)
  - PNEUMONITIS [None]
